FAERS Safety Report 8913896 (Version 1)
Quarter: 2012Q4

REPORT INFORMATION
  Report Type: 
  Country: DE (occurrence: DE)
  Receive Date: 20121119
  Receipt Date: 20121119
  Transmission Date: 20130627
  Serious: Yes (Other)
  Sender: FDA-Public Use
  Company Number: DE-BRISTOL-MYERS SQUIBB COMPANY-17082736

PATIENT
  Age: 34 Year
  Sex: Female
  Weight: 59 kg

DRUGS (3)
  1. ABILIFY [Suspect]
     Indication: SCHIZOAFFECTIVE DISORDER
     Dosage: 30mg:March 2012
20mg:May 2012 
15mg:Jul06
27Sep12:20mg
     Route: 048
     Dates: start: 2005
  2. RISPERIDONE [Suspect]
  3. LAMOTRIGINE [Suspect]

REACTIONS (2)
  - Condition aggravated [Unknown]
  - Alopecia [Not Recovered/Not Resolved]
